FAERS Safety Report 10022449 (Version 3)
Quarter: 2014Q4

REPORT INFORMATION
  Report Type: Spontaneous
  Country: US (occurrence: US)
  Receive Date: 20140319
  Receipt Date: 20141111
  Transmission Date: 20150528
  Serious: Yes (Hospitalization, Disabling, Other)
  Sender: FDA-Public Use
  Company Number: US-SANOFI-AVENTIS-2012SA058137

PATIENT
  Age: 41 Year
  Sex: Male

DRUGS (1)
  1. PLAVIX [Suspect]
     Active Substance: CLOPIDOGREL BISULFATE
     Indication: PRODUCT USED FOR UNKNOWN INDICATION
     Route: 048
     Dates: start: 20030919, end: 20090402

REACTIONS (11)
  - Social problem [Unknown]
  - Economic problem [Unknown]
  - Psychological trauma [Unknown]
  - Pain [Unknown]
  - Tension [Unknown]
  - Gastrointestinal haemorrhage [Unknown]
  - Anhedonia [Unknown]
  - Multiple injuries [Unknown]
  - Loss of employment [Unknown]
  - Deformity [Unknown]
  - Physical disability [Unknown]

NARRATIVE: CASE EVENT DATE: 20060203
